FAERS Safety Report 22207016 (Version 1)
Quarter: 2023Q2

REPORT INFORMATION
  Report Type: Spontaneous
  Country: US (occurrence: US)
  Receive Date: 20230413
  Receipt Date: 20230413
  Transmission Date: 20230722
  Serious: No
  Sender: FDA-Public Use
  Company Number: US-PFIZER INC-202300150032

PATIENT
  Age: 75 Year
  Sex: Male

DRUGS (2)
  1. PAXLOVID [Interacting]
     Active Substance: NIRMATRELVIR\RITONAVIR
     Indication: COVID-19 treatment
     Dosage: UNK
     Dates: start: 20230402, end: 20230405
  2. CARBIDOPA LEVODOPA [Interacting]
     Active Substance: CARBIDOPA\LEVODOPA
     Dosage: 25/100
     Dates: start: 201908

REACTIONS (5)
  - Drug interaction [Unknown]
  - Tremor [Recovering/Resolving]
  - Anxiety [Recovering/Resolving]
  - Muscle twitching [Recovering/Resolving]
  - Initial insomnia [Recovering/Resolving]

NARRATIVE: CASE EVENT DATE: 20230403
